FAERS Safety Report 8406989-8 (Version None)
Quarter: 2012Q2

REPORT INFORMATION
  Report Type: 
  Country: None (occurrence: None)
  Receive Date: 20120604
  Receipt Date: 20120529
  Transmission Date: 20120825
  Serious: Yes (Death)
  Sender: FDA-Public Use
  Company Number: JP-PFIZER INC-2012132505

PATIENT
  Age: 41 Year
  Sex: Male

DRUGS (1)
  1. ARGATROBAN [Suspect]
     Route: 051

REACTIONS (1)
  - CARDIO-RESPIRATORY ARREST [None]
